APPROVED DRUG PRODUCT: BRIVARACETAM
Active Ingredient: BRIVARACETAM
Strength: 50MG
Dosage Form/Route: TABLET;ORAL
Application: A214921 | Product #003 | TE Code: AB
Applicant: MSN LABORATORIES PRIVATE LTD
Approved: Nov 13, 2025 | RLD: No | RS: No | Type: RX